FAERS Safety Report 9223723 (Version 1)
Quarter: 2013Q2

REPORT INFORMATION
  Report Type: Spontaneous
  Country: US (occurrence: US)
  Receive Date: 20130410
  Receipt Date: 20130410
  Transmission Date: 20140414
  Serious: Yes (Other)
  Sender: FDA-Public Use
  Company Number: PHHY2013US034279

PATIENT
  Age: 85 Year
  Sex: Female

DRUGS (1)
  1. BUFFERIN REGULAR STRENGTH [Suspect]
     Indication: BLOOD DISORDER
     Dosage: 1 DF, EVERY DAY
     Route: 048

REACTIONS (2)
  - Cataract [Recovered/Resolved]
  - Incorrect drug administration duration [Unknown]
